FAERS Safety Report 7346521-3 (Version None)
Quarter: 2011Q1

REPORT INFORMATION
  Report Type: 
  Country: None (occurrence: None)
  Receive Date: 20110311
  Receipt Date: 20110228
  Transmission Date: 20110831
  Serious: Yes (Hospitalization)
  Sender: FDA-Public Use
  Company Number: JP-JNJFOC-20110301706

PATIENT
  Age: 86 Year
  Sex: Female

DRUGS (4)
  1. REMICADE [Suspect]
     Route: 042
  2. METHOTREXATE [Concomitant]
     Route: 048
  3. REMICADE [Suspect]
     Route: 042
  4. REMICADE [Suspect]
     Indication: RHEUMATOID ARTHRITIS
     Route: 042

REACTIONS (1)
  - TUBERCULOSIS [None]
